FAERS Safety Report 5618943-X (Version None)
Quarter: 2008Q1

REPORT INFORMATION
  Report Type: 
  Country: None (occurrence: None)
  Receive Date: 20080207
  Receipt Date: 20080130
  Transmission Date: 20080703
  Serious: Yes (Hospitalization, Other)
  Sender: FDA-Public Use
  Company Number: PHFR2002GB02318

PATIENT
  Age: 48 Year
  Sex: Female

DRUGS (6)
  1. CLOZARIL [Suspect]
     Indication: SCHIZOPHRENIA
     Route: 048
     Dates: start: 20011231
  2. CLOZARIL [Suspect]
     Dosage: 350MG DAILY
     Route: 048
  3. VENLAFAXINE HCL [Concomitant]
     Route: 065
  4. IBUPROFEN [Concomitant]
     Route: 065
  5. PROPANTHELINE [Concomitant]
     Route: 065
  6. AMITRIPTYLINE HCL [Concomitant]
     Route: 065

REACTIONS (5)
  - ANKLE FRACTURE [None]
  - DIZZINESS [None]
  - ORTHOSTATIC HYPOTENSION [None]
  - TACHYCARDIA [None]
  - WOUND INFECTION [None]
